FAERS Safety Report 5159453-6 (Version None)
Quarter: 2006Q4

REPORT INFORMATION
  Report Type: 
  Country: None (occurrence: None)
  Receive Date: 20061122
  Receipt Date: 20061122
  Transmission Date: 20070319
  Serious: Yes (Other)
  Sender: FDA-Public Use
  Company Number: None

PATIENT
  Age: 59 Year
  Sex: Male
  Weight: 107 kg

DRUGS (17)
  1. COLISTIMETHATE [Suspect]
     Indication: ACINETOBACTER INFECTION
     Dosage: 140 MG Q24H IV
     Route: 042
     Dates: start: 20061003, end: 20061009
  2. ALBUTEROL [Concomitant]
  3. AMLODIPINE [Concomitant]
  4. CHLORHEXIDINE [Concomitant]
  5. CLONIDINE [Concomitant]
  6. FENTANYL [Concomitant]
  7. GLUCOSE [Concomitant]
  8. IMIPENEM [Concomitant]
  9. REGULAR INSULIN [Concomitant]
  10. IPRATROPIUM BROMIDE [Concomitant]
  11. LABETALOL HCL [Concomitant]
  12. LORAZEPAM [Concomitant]
  13. METOCLOPRAMIDE [Concomitant]
  14. METOPROLOL SUCCINATE [Concomitant]
  15. METRONIDAZOLE [Concomitant]
  16. PANTOPRAZOLE SODIUM [Concomitant]
  17. OCULAR LUBRICANT [Concomitant]

REACTIONS (2)
  - PARALYSIS FLACCID [None]
  - QUADRIPLEGIA [None]
